FAERS Safety Report 20258148 (Version 1)
Quarter: 2021Q4

REPORT INFORMATION
  Report Type: Spontaneous
  Country: US (occurrence: None)
  Receive Date: 20211229
  Receipt Date: 20211229
  Transmission Date: 20220303
  Serious: Yes (Hospitalization)
  Sender: FDA-Public Use
  Company Number: None

PATIENT
  Sex: Male

DRUGS (13)
  1. DALFAMPRIDINE [Suspect]
     Active Substance: DALFAMPRIDINE
     Indication: Multiple sclerosis
     Dosage: FREQUENCY : TWICE DAILY
     Route: 048
     Dates: start: 20181023
  2. ALENDRONATE [Concomitant]
     Active Substance: ALENDRONATE SODIUM
  3. BACLOFEN [Concomitant]
     Active Substance: BACLOFEN
  4. BIOTIN [Concomitant]
     Active Substance: BIOTIN
  5. DANTROLENE [Concomitant]
     Active Substance: DANTROLENE
  6. GABAPENTIN [Concomitant]
     Active Substance: GABAPENTIN
  7. NALTREXONE HYDROCHLORIDE [Concomitant]
     Active Substance: NALTREXONE HYDROCHLORIDE
  8. OXCARBAZEPINE [Concomitant]
     Active Substance: OXCARBAZEPINE
  9. RITUXAN [Concomitant]
     Active Substance: RITUXIMAB
  10. TAMSULOSIN [Concomitant]
     Active Substance: TAMSULOSIN
  11. VIAGRA [Concomitant]
     Active Substance: SILDENAFIL CITRATE
  12. VITAMIN D3 [Concomitant]
     Active Substance: CHOLECALCIFEROL
  13. BOTOX [Suspect]
     Active Substance: ONABOTULINUMTOXINA

REACTIONS (3)
  - Herpes zoster [None]
  - Asthenia [None]
  - Locomotive syndrome [None]
